FAERS Safety Report 9316245 (Version 1)
Quarter: 2013Q2

REPORT INFORMATION
  Report Type: Spontaneous
  Country: US (occurrence: None)
  Receive Date: 20130528
  Receipt Date: 20130528
  Transmission Date: 20140414
  Serious: Yes (Hospitalization)
  Sender: FDA-Public Use
  Company Number: None

PATIENT
  Age: 83 Year
  Sex: Male
  Weight: 72.9 kg

DRUGS (1)
  1. TOLTERODINE [Suspect]
     Indication: URINARY INCONTINENCE
     Route: 048
     Dates: start: 20130423, end: 20130514

REACTIONS (4)
  - Somnolence [None]
  - Hallucination, visual [None]
  - Mental status changes [None]
  - Confusional state [None]
